FAERS Safety Report 9015902 (Version 7)
Quarter: 2014Q2

REPORT INFORMATION
  Report Type: Spontaneous
  Country: US (occurrence: US)
  Receive Date: 20130116
  Receipt Date: 20140610
  Transmission Date: 20141212
  Serious: Yes (Death, Hospitalization, Other)
  Sender: FDA-Public Use
  Company Number: US-009507513-1112USA01463

PATIENT
  Sex: Female
  Weight: 67.57 kg

DRUGS (3)
  1. FOSAMAX [Suspect]
     Indication: OSTEOPOROSIS PROPHYLAXIS
     Dosage: 70 MG, QW
     Route: 048
     Dates: start: 20011120, end: 20070417
  2. FOSAMAX [Suspect]
     Indication: OSTEOPOROSIS PROPHYLAXIS
     Dosage: 70 MG, UNK
     Route: 048
     Dates: start: 20080218
  3. METOPROLOL [Concomitant]
     Indication: HYPERTENSION
     Dosage: 240 MG, UNK
     Dates: start: 2000, end: 2009

REACTIONS (60)
  - Femur fracture [Recovered/Resolved]
  - Open reduction of fracture [Recovered/Resolved]
  - Myocardial infarction [Fatal]
  - Cardiac disorder [Fatal]
  - Peripheral arterial occlusive disease [Fatal]
  - Myocardial infarction [Unknown]
  - Hypertrophic cardiomyopathy [Not Recovered/Not Resolved]
  - Chest discomfort [Unknown]
  - Dyspnoea [Unknown]
  - Chest pain [Unknown]
  - Chest pain [Unknown]
  - Dyspnoea [Unknown]
  - Chest pain [Unknown]
  - Electrolyte imbalance [Unknown]
  - Fatigue [Unknown]
  - Cough [Unknown]
  - Bronchopneumonia [Unknown]
  - Asthenia [Unknown]
  - Asthenia [Unknown]
  - Pyrexia [Unknown]
  - Impaired healing [Unknown]
  - Cardiac murmur [Unknown]
  - Dysuria [Unknown]
  - Low turnover osteopathy [Unknown]
  - Wrist fracture [Unknown]
  - Carotid artery disease [Unknown]
  - Colitis ischaemic [Not Recovered/Not Resolved]
  - Fracture delayed union [Unknown]
  - Catheterisation cardiac [Unknown]
  - Cardiac septal hypertrophy [Unknown]
  - Myocardial calcification [Unknown]
  - Dyspnoea [Recovered/Resolved]
  - Anaemia [Unknown]
  - Kyphoscoliosis [Unknown]
  - Confusional state [Unknown]
  - Cardiac valve disease [Unknown]
  - Mitral valve incompetence [Unknown]
  - Dyspnoea exertional [Unknown]
  - Supraventricular extrasystoles [Unknown]
  - Retinal haemorrhage [Unknown]
  - Arthritis [Unknown]
  - Aortic stenosis [Not Recovered/Not Resolved]
  - Stress cardiomyopathy [Unknown]
  - Drug intolerance [Unknown]
  - Osteoporosis [Unknown]
  - Left ventricle outflow tract obstruction [Unknown]
  - Peripheral vascular disorder [Unknown]
  - Catheterisation cardiac [Unknown]
  - Macular degeneration [Unknown]
  - Cardiac failure congestive [Not Recovered/Not Resolved]
  - Faecal incontinence [Unknown]
  - Colitis [Unknown]
  - Gastric polyps [Unknown]
  - Colon adenoma [Unknown]
  - Intestinal ulcer [Unknown]
  - Fibrosis [Unknown]
  - Intestinal ischaemia [Unknown]
  - Intestinal polyp [Unknown]
  - Chronic gastritis [Not Recovered/Not Resolved]
  - Oedema peripheral [Unknown]
